FAERS Safety Report 4292511-7 (Version None)
Quarter: 2004Q1

REPORT INFORMATION
  Report Type: 
  Country: None (occurrence: None)
  Receive Date: 20040211
  Receipt Date: 20040211
  Transmission Date: 20041129
  Serious: Yes (Life-Threatening, Hospitalization)
  Sender: FDA-Public Use
  Company Number: None

PATIENT
  Age: 58 Year
  Sex: Female
  Weight: 77.1115 kg

DRUGS (1)
  1. BACTRIM [Suspect]
     Indication: PULMONARY CONGESTION
     Dosage: BID ORAL
     Route: 048
     Dates: start: 20030827, end: 20030904

REACTIONS (5)
  - BLISTER [None]
  - CATARACT [None]
  - ORAL MUCOSAL BLISTERING [None]
  - SKIN DESQUAMATION [None]
  - STEVENS-JOHNSON SYNDROME [None]
